FAERS Safety Report 16212402 (Version 2)
Quarter: 2019Q3

REPORT INFORMATION
  Report Type: Report from Study
  Country: NO (occurrence: NO)
  Receive Date: 20190418
  Receipt Date: 20190814
  Transmission Date: 20191004
  Serious: Yes (Other)
  Sender: FDA-Public Use
  Company Number: NO-ROCHE-2304175

PATIENT
  Age: 66 Year
  Sex: Female

DRUGS (19)
  1. ZOFRAN [Concomitant]
     Active Substance: ONDANSETRON HYDROCHLORIDE
     Indication: PROPHYLAXIS
     Route: 048
     Dates: start: 20181114
  2. EURAX [Concomitant]
     Active Substance: CROTAMITON
     Indication: PRURITUS
     Route: 065
     Dates: start: 20190109
  3. MEROPENEM TRIHYDRATE [Concomitant]
     Active Substance: MEROPENEM
     Indication: INFECTION
     Route: 042
     Dates: start: 20190221, end: 20190227
  4. LEVAXIN [Concomitant]
     Active Substance: LEVOTHYROXINE SODIUM
     Indication: HYPOTHYROIDISM
     Route: 048
  5. VENETOCLAX. [Suspect]
     Active Substance: VENETOCLAX
     Indication: PLASMA CELL MYELOMA
     Dosage: DATE OF MOST RECENT DOSE: 09/JAN/2019
     Route: 048
     Dates: start: 20181114
  6. PROPYLENE GLYCOL [Concomitant]
     Active Substance: PROPYLENE GLYCOL
     Route: 042
     Dates: start: 20190223, end: 20190225
  7. ANIDULAFUNGIN [Concomitant]
     Active Substance: ANIDULAFUNGIN
     Indication: INFECTION
     Route: 042
     Dates: start: 20190307, end: 20190321
  8. COBIMETINIB. [Suspect]
     Active Substance: COBIMETINIB
     Indication: PLASMA CELL MYELOMA
     Dosage: DATE OF MOST RECENT DOSE: 29/JAN/2019
     Route: 048
     Dates: start: 20181114
  9. NEUPOGEN [Concomitant]
     Active Substance: FILGRASTIM
     Indication: CYTOPENIA
     Route: 058
     Dates: start: 20181227
  10. CYKLOKAPRON [Concomitant]
     Active Substance: TRANEXAMIC ACID
     Indication: HAEMORRHAGE
     Route: 048
     Dates: start: 20190123
  11. FLUCONAZOLE. [Concomitant]
     Active Substance: FLUCONAZOLE
     Indication: INFECTION
     Route: 042
     Dates: start: 20190302, end: 20190307
  12. SOMAC [Concomitant]
     Active Substance: PANTOPRAZOLE SODIUM
     Route: 048
     Dates: start: 20181209
  13. ALCOHOL. [Concomitant]
     Active Substance: ALCOHOL
     Indication: INFECTION
     Route: 042
     Dates: start: 20190223, end: 20190225
  14. CEFTAZIDIME PENTAHYDRATE [Concomitant]
     Active Substance: CEFTAZIDIME
     Indication: INFECTION
     Route: 042
     Dates: start: 20190227, end: 20190324
  15. ZOMETA [Concomitant]
     Active Substance: ZOLEDRONIC ACID
     Route: 042
     Dates: start: 201701
  16. LONQUEX [Concomitant]
     Active Substance: LIPEGFILGRASTIM
     Indication: NEUTROPENIA
     Route: 058
     Dates: start: 20181227
  17. LOCOID [Concomitant]
     Active Substance: HYDROCORTISONE BUTYRATE
     Indication: RASH
     Route: 065
     Dates: start: 20190109
  18. PIPERACILLIN. [Concomitant]
     Active Substance: PIPERACILLIN SODIUM
     Route: 042
     Dates: start: 20190218, end: 20190221
  19. BACTRIM [Concomitant]
     Active Substance: SULFAMETHOXAZOLE\TRIMETHOPRIM
     Indication: INFECTION
     Dosage: 480 MG/ 80 MG
     Route: 042
     Dates: start: 20190223, end: 20190225

REACTIONS (1)
  - Melaena [Recovered/Resolved]

NARRATIVE: CASE EVENT DATE: 20190222
